FAERS Safety Report 26066594 (Version 1)
Quarter: 2025Q4

REPORT INFORMATION
  Report Type: Spontaneous
  Country: US (occurrence: US)
  Receive Date: 20251119
  Receipt Date: 20251119
  Transmission Date: 20260118
  Serious: Yes (Hospitalization, Other)
  Sender: ELI LILLY AND COMPANY
  Company Number: US-ELI_LILLY_AND_COMPANY-US202511019955

PATIENT
  Age: 40 Year
  Sex: Female

DRUGS (8)
  1. TADALAFIL [Suspect]
     Active Substance: TADALAFIL
     Indication: Pulmonary arterial hypertension
     Dosage: UNK, UNKNOWN
     Route: 065
  2. ORENITRAM [Suspect]
     Active Substance: TREPROSTINIL
     Indication: Pulmonary arterial hypertension
     Dosage: 0.125 MG, TID
     Route: 048
     Dates: start: 20250923
  3. ORENITRAM [Suspect]
     Active Substance: TREPROSTINIL
     Dosage: 0.25 MG, TID
     Route: 048
     Dates: start: 202509, end: 20251006
  4. TYVASO [Suspect]
     Active Substance: TREPROSTINIL
     Indication: Product used for unknown indication
     Dosage: 0.125 MG, TID
     Route: 065
  5. WINREVAIR [Suspect]
     Active Substance: SOTATERCEPT-CSRK
     Indication: Product used for unknown indication
     Dosage: UNK, UNKNOWN
     Route: 065
  6. WINREVAIR [Suspect]
     Active Substance: SOTATERCEPT-CSRK
     Dosage: 60 MG, UNKNOWN
     Route: 065
  7. WINREVAIR [Suspect]
     Active Substance: SOTATERCEPT-CSRK
     Dosage: 45 MG, UNKNOWN
     Route: 065
  8. MACITENTAN\TADALAFIL [Suspect]
     Active Substance: MACITENTAN\TADALAFIL
     Indication: Product used for unknown indication
     Dosage: UNK, UNKNOWN
     Route: 065

REACTIONS (10)
  - Hypervolaemia [Unknown]
  - Lupus nephritis [Unknown]
  - Dyspnoea [Unknown]
  - Arthralgia [Unknown]
  - Urticaria [Recovered/Resolved]
  - Urine abnormality [Recovered/Resolved]
  - Throat tightness [Recovered/Resolved]
  - Abdominal pain upper [Unknown]
  - Arterial disorder [Unknown]
  - Musculoskeletal stiffness [Unknown]
